FAERS Safety Report 16455983 (Version 1)
Quarter: 2019Q2

REPORT INFORMATION
  Report Type: Spontaneous
  Country: SE (occurrence: SE)
  Receive Date: 20190620
  Receipt Date: 20190620
  Transmission Date: 20190711
  Serious: Yes (Other)
  Sender: FDA-Public Use
  Company Number: SE-EMD SERONO-E2B_90068462

PATIENT
  Age: 39 Year
  Sex: Male

DRUGS (1)
  1. REBIF [Suspect]
     Active Substance: INTERFERON BETA-1A
     Indication: MULTIPLE SCLEROSIS
     Dates: start: 20040812, end: 20190604

REACTIONS (1)
  - Venous thrombosis [Recovered/Resolved]

NARRATIVE: CASE EVENT DATE: 20190416
